FAERS Safety Report 19156183 (Version 1)
Quarter: 2021Q2

REPORT INFORMATION
  Report Type: Spontaneous
  Country: FR (occurrence: FR)
  Receive Date: 20210419
  Receipt Date: 20210419
  Transmission Date: 20210717
  Serious: Yes (Hospitalization, Other)
  Sender: FDA-Public Use
  Company Number: FR-FERRINGPH-2021FE02271

PATIENT
  Age: 79 Year
  Sex: Male
  Weight: 84 kg

DRUGS (5)
  1. COMIRNATY [Suspect]
     Active Substance: TOZINAMERAN
     Indication: COVID-19 IMMUNISATION
     Dosage: 1 DF (TOTAL)
     Route: 030
     Dates: start: 20210223, end: 20210223
  2. SOLIFENACINE [SOLIFENACIN] [Concomitant]
     Active Substance: SOLIFENACIN
     Dosage: 10 MG, 1 TIME DAILY
     Route: 048
     Dates: start: 2015
  3. DEGARELIX [Suspect]
     Active Substance: DEGARELIX
     Indication: COVID-19 IMMUNISATION
     Route: 058
     Dates: start: 20201124
  4. DESLORATADINE. [Concomitant]
     Active Substance: DESLORATADINE
     Dosage: 15 MG, 1 TIME DAILY
     Route: 048
  5. DIPROSONE [Concomitant]
     Active Substance: BETAMETHASONE DIPROPIONATE
     Dosage: 1 DF, 1 TIME DAILY
     Route: 003

REACTIONS (1)
  - Pemphigoid [Recovered/Resolved]

NARRATIVE: CASE EVENT DATE: 20210226
